FAERS Safety Report 12159815 (Version 1)
Quarter: 2016Q1

REPORT INFORMATION
  Report Type: Spontaneous
  Country: US (occurrence: US)
  Receive Date: 20160308
  Receipt Date: 20160308
  Transmission Date: 20160526
  Serious: Yes (Other)
  Sender: FDA-Public Use
  Company Number: US-TEVA-640980USA

PATIENT
  Age: 44 Year
  Sex: Female

DRUGS (1)
  1. ZECUITY [Suspect]
     Active Substance: SUMATRIPTAN SUCCINATE
     Dosage: PATIENT IS NOW ON BOX NUMBER 3 OF PATCHES, SUBSEQUENT THERAPY DATES NOT PROVIDED
     Route: 062
     Dates: start: 20151031, end: 20151031

REACTIONS (6)
  - Application site discolouration [Recovered/Resolved]
  - Device leakage [Unknown]
  - Application site pruritus [Recovered/Resolved]
  - Application site swelling [Recovered/Resolved]
  - Sunburn [Recovered/Resolved]
  - Application site erythema [Recovered/Resolved]

NARRATIVE: CASE EVENT DATE: 20151031
